FAERS Safety Report 9604610 (Version 3)
Quarter: 2013Q4

REPORT INFORMATION
  Report Type: Spontaneous
  Country: JP (occurrence: JP)
  Receive Date: 20131008
  Receipt Date: 20131021
  Transmission Date: 20140711
  Serious: Yes (Other)
  Sender: FDA-Public Use
  Company Number: JP-PFIZER INC-2013271418

PATIENT
  Age: 63 Year
  Sex: Male

DRUGS (3)
  1. LYRICA [Suspect]
     Dosage: 75 MG DAILY
     Route: 048
     Dates: start: 20130725, end: 20130731
  2. LYRICA [Interacting]
     Dosage: UNK
     Dates: start: 20130801
  3. WARFARIN [Interacting]

REACTIONS (2)
  - Drug interaction [Unknown]
  - International normalised ratio increased [Unknown]
